FAERS Safety Report 20717737 (Version 1)
Quarter: 2022Q2

REPORT INFORMATION
  Report Type: Report from Study
  Country: LB (occurrence: LB)
  Receive Date: 20220417
  Receipt Date: 20220417
  Transmission Date: 20220720
  Serious: Yes (Hospitalization)
  Sender: FDA-Public Use
  Company Number: LB-ABBVIE-22K-093-4359761-00

PATIENT
  Age: 56 Year
  Sex: Male
  Weight: 60 kg

DRUGS (15)
  1. RINVOQ [Suspect]
     Active Substance: UPADACITINIB
     Indication: Rheumatoid arthritis
     Route: 048
     Dates: start: 20220112
  2. DIANORM XR [Concomitant]
     Indication: Product used for unknown indication
     Dosage: DAILY, DIANORM 750 XR
     Dates: start: 20220407
  3. DIAMERIL [Concomitant]
     Indication: Product used for unknown indication
     Dosage: DAILY
     Dates: start: 20220407
  4. SAGIFOR [Concomitant]
     Indication: Product used for unknown indication
     Dosage: DAILY
     Dates: start: 20220407
  5. PREDNISONE [Concomitant]
     Active Substance: PREDNISONE
     Indication: Product used for unknown indication
     Dosage: TO BE TAPERED GRADUALLY
     Dates: start: 2021
  6. DORIXINA [Concomitant]
     Indication: Pain
     Dosage: ONCE DAILY
     Dates: start: 2021
  7. CORVAQUINE [Concomitant]
     Indication: Product used for unknown indication
     Dates: start: 2021
  8. DEFAL [Concomitant]
     Indication: Product used for unknown indication
     Dates: start: 2018
  9. PROXEN [Concomitant]
     Indication: Product used for unknown indication
     Dates: start: 2018
  10. ISODEX [Concomitant]
     Indication: Product used for unknown indication
     Dates: start: 2018
  11. AMAPINE [Concomitant]
     Indication: Product used for unknown indication
     Dosage: ONCE DAILY, AMAPINE-5
     Dates: start: 2014
  12. ASPIREM [Concomitant]
     Indication: Product used for unknown indication
     Dates: start: 2014
  13. BISOPROLOL FUMARATE [Concomitant]
     Active Substance: BISOPROLOL FUMARATE
     Indication: Product used for unknown indication
     Dates: start: 2014
  14. SIMVASTATIN [Concomitant]
     Active Substance: SIMVASTATIN
     Indication: Product used for unknown indication
     Dates: start: 2014
  15. AROTAN [Concomitant]
     Indication: Product used for unknown indication
     Dates: start: 2021

REACTIONS (3)
  - Blood glucose abnormal [Recovered/Resolved]
  - Glycosylated haemoglobin abnormal [Not Recovered/Not Resolved]
  - C-reactive protein increased [Not Recovered/Not Resolved]

NARRATIVE: CASE EVENT DATE: 20220407
